FAERS Safety Report 21908970 (Version 1)
Quarter: 2023Q1

REPORT INFORMATION
  Report Type: Spontaneous
  Country: CN (occurrence: CN)
  Receive Date: 20230125
  Receipt Date: 20230125
  Transmission Date: 20230418
  Serious: Yes (Other)
  Sender: FDA-Public Use
  Company Number: CN-002147023-NVSC2023CN007794

PATIENT

DRUGS (1)
  1. RUXOLITINIB [Suspect]
     Active Substance: RUXOLITINIB
     Indication: Prophylaxis against graft versus host disease
     Dosage: 5 MG, QD (24 H BEFORE MDLI)
     Route: 048

REACTIONS (1)
  - Acute graft versus host disease [Unknown]
